FAERS Safety Report 12637109 (Version 1)
Quarter: 2016Q3

REPORT INFORMATION
  Report Type: Spontaneous
  Country: US (occurrence: US)
  Receive Date: 20160809
  Receipt Date: 20160809
  Transmission Date: 20161109
  Serious: No
  Sender: FDA-Public Use
  Company Number: US-BEH-2015052786

PATIENT
  Sex: Male
  Weight: 122 kg

DRUGS (40)
  1. SOLU-CORTEF [Concomitant]
     Active Substance: HYDROCORTISONE SODIUM SUCCINATE
  2. PRAVACHOL [Concomitant]
     Active Substance: PRAVASTATIN SODIUM
  3. FUROSEMIDE. [Concomitant]
     Active Substance: FUROSEMIDE
  4. NORVASC [Concomitant]
     Active Substance: AMLODIPINE BESYLATE
  5. ASPIRIN. [Concomitant]
     Active Substance: ASPIRIN
  6. TESTOSTERONE. [Concomitant]
     Active Substance: TESTOSTERONE
  7. CLONIDINE. [Concomitant]
     Active Substance: CLONIDINE
  8. LASIX [Concomitant]
     Active Substance: FUROSEMIDE
  9. ZYRTEC [Concomitant]
     Active Substance: CETIRIZINE HYDROCHLORIDE
  10. DIPHENHYDRAMINE. [Concomitant]
     Active Substance: DIPHENHYDRAMINE
  11. NORMAL SALINE [Concomitant]
     Active Substance: SODIUM CHLORIDE
  12. XOPENEX [Concomitant]
     Active Substance: LEVALBUTEROL HYDROCHLORIDE
  13. FLUTICASONE [Concomitant]
     Active Substance: FLUTICASONE\FLUTICASONE PROPIONATE
  14. REQUIP [Concomitant]
     Active Substance: ROPINIROLE HYDROCHLORIDE
  15. ADVAIR HFA [Concomitant]
     Active Substance: FLUTICASONE PROPIONATE\SALMETEROL XINAFOATE
  16. PRIVIGEN [Suspect]
     Active Substance: HUMAN IMMUNOGLOBULIN G
     Indication: HYPOGAMMAGLOBULINAEMIA
     Route: 042
  17. PRIVIGEN [Suspect]
     Active Substance: HUMAN IMMUNOGLOBULIN G
     Indication: HUMORAL IMMUNE DEFECT
     Route: 042
  18. ALLEGRA [Concomitant]
     Active Substance: FEXOFENADINE HYDROCHLORIDE
  19. CLEOCIN [Concomitant]
     Active Substance: CLINDAMYCIN PHOSPHATE
  20. DIOVAN [Concomitant]
     Active Substance: VALSARTAN
  21. ALLOPURINOL. [Concomitant]
     Active Substance: ALLOPURINOL
  22. ASPIRIN. [Concomitant]
     Active Substance: ASPIRIN
  23. TRAVATAN [Concomitant]
     Active Substance: TRAVOPROST
  24. NEXIUM [Concomitant]
     Active Substance: ESOMEPRAZOLE MAGNESIUM
  25. PROAIR HFA [Concomitant]
     Active Substance: ALBUTEROL SULFATE
  26. ACETAMINOPHEN. [Concomitant]
     Active Substance: ACETAMINOPHEN
  27. MONTELUKAST [Concomitant]
     Active Substance: MONTELUKAST SODIUM
  28. MULTIVITAMIN [Concomitant]
     Active Substance: VITAMINS
  29. SYMBICORT [Concomitant]
     Active Substance: BUDESONIDE\FORMOTEROL FUMARATE DIHYDRATE
  30. SODIUM CHLORIDE. [Concomitant]
     Active Substance: SODIUM CHLORIDE
  31. KEFLEX [Concomitant]
     Active Substance: CEPHALEXIN
  32. CELEBREX [Concomitant]
     Active Substance: CELECOXIB
  33. AZELASTINE [Concomitant]
     Active Substance: AZELASTINE
  34. RANITIDINE. [Concomitant]
     Active Substance: RANITIDINE
  35. ROPINIROLE. [Concomitant]
     Active Substance: ROPINIROLE
  36. ARMOUR THYROID [Concomitant]
     Active Substance: THYROID, PORCINE
  37. GABAPENTIN. [Concomitant]
     Active Substance: GABAPENTIN
  38. EPIPEN [Concomitant]
     Active Substance: EPINEPHRINE
     Indication: ANAPHYLACTIC REACTION
  39. CIPRO [Concomitant]
     Active Substance: CIPROFLOXACIN HYDROCHLORIDE
  40. MUCINEX [Concomitant]
     Active Substance: GUAIFENESIN

REACTIONS (1)
  - Sinusitis [Unknown]
